FAERS Safety Report 11811456 (Version 2)
Quarter: 2016Q1

REPORT INFORMATION
  Report Type: Spontaneous
  Country: US (occurrence: US)
  Receive Date: 20151208
  Receipt Date: 20160118
  Transmission Date: 20160525
  Serious: No
  Sender: FDA-Public Use
  Company Number: US-PFIZER INC-2015423345

PATIENT
  Age: 68 Year
  Sex: Female

DRUGS (4)
  1. EFFEXOR XR [Suspect]
     Active Substance: VENLAFAXINE HYDROCHLORIDE
     Indication: HEADACHE
     Dosage: 150 MG, 1X/DAY (1 CAPSULE WITH FOOD-DAW ONCE A DAY )
     Route: 048
     Dates: start: 2013
  2. PROVERA [Suspect]
     Active Substance: MEDROXYPROGESTERONE ACETATE
     Indication: OSTEOPOROSIS
     Dosage: 60 MG, UNK
     Dates: start: 2013
  3. CELEBREX [Suspect]
     Active Substance: CELECOXIB
     Indication: OSTEOARTHRITIS
     Dosage: 200 MG, 1X/DAY
     Route: 048
     Dates: start: 2013
  4. EFFEXOR XR [Suspect]
     Active Substance: VENLAFAXINE HYDROCHLORIDE
     Indication: OSTEOARTHRITIS

REACTIONS (1)
  - Osteopenia [Not Recovered/Not Resolved]
